FAERS Safety Report 16869243 (Version 1)
Quarter: 2019Q3

REPORT INFORMATION
  Report Type: Spontaneous
  Country: US (occurrence: US)
  Receive Date: 20190930
  Receipt Date: 20190930
  Transmission Date: 20191005
  Serious: Yes (Hospitalization)
  Sender: FDA-Public Use
  Company Number: US-ALLERGAN-1939173US

PATIENT
  Sex: Female

DRUGS (4)
  1. MOBIC [Concomitant]
     Active Substance: MELOXICAM
     Indication: ARTHRITIS
     Dosage: UNK
     Dates: start: 201908
  2. VIBERZI [Suspect]
     Active Substance: ELUXADOLINE
     Indication: ABDOMINAL PAIN UPPER
     Dosage: 75 MG, QD
     Route: 048
     Dates: start: 20190829, end: 20190831
  3. BYETTA [Concomitant]
     Active Substance: EXENATIDE
     Indication: DIABETES MELLITUS
  4. LANTUS [Concomitant]
     Active Substance: INSULIN GLARGINE
     Indication: DIABETES MELLITUS

REACTIONS (5)
  - Muscular weakness [Not Recovered/Not Resolved]
  - Off label use [Unknown]
  - Cerebrovascular accident [Recovering/Resolving]
  - Hypoaesthesia [Not Recovered/Not Resolved]
  - Eyelid function disorder [Not Recovered/Not Resolved]

NARRATIVE: CASE EVENT DATE: 20190831
